FAERS Safety Report 8756391 (Version 1)
Quarter: 2012Q4

REPORT INFORMATION
  Report Type: Report from Study
  Country: GB (occurrence: GB)
  Receive Date: 20120828
  Receipt Date: 20120828
  Transmission Date: 20130627
  Serious: Yes (Hospitalization)
  Sender: FDA-Public Use
  Company Number: GB-AMGEN-UK282839

PATIENT
  Age: 72 Year
  Sex: Male
  Weight: 75.4 kg

DRUGS (8)
  1. PANITUMUMAB [Suspect]
     Indication: COLORECTAL CANCER
     Dosage: 675 mg, qcycle
     Route: 041
     Dates: start: 20080520
  2. IRINOTECAN [Suspect]
     Dosage: 580 mg, qcycle
     Route: 041
     Dates: start: 20080520
  3. LOPERAMIDE [Suspect]
     Dosage: 2 mg, UNK
     Route: 048
     Dates: start: 20080525
  4. OMEPRAZOLE [Suspect]
     Dosage: 20 mg, qd
     Route: 048
     Dates: start: 2007
  5. ATORVASTATIN [Suspect]
     Dosage: 20 mg, qd
     Route: 048
     Dates: start: 2007
  6. LEVOTHYROXINE SODIUM [Suspect]
     Dosage: 25 ?g, qd
     Route: 048
     Dates: start: 2007
  7. WARFARIN [Suspect]
     Dosage: UNK UNK, qd
     Route: 048
     Dates: start: 20080222
  8. FERROUS SULFATE [Suspect]
     Dosage: 200 mg, tid
     Route: 048
     Dates: start: 2007

REACTIONS (2)
  - Diarrhoea [Recovering/Resolving]
  - Vomiting [Recovering/Resolving]
